FAERS Safety Report 9519297 (Version 2)
Quarter: 2013Q3

REPORT INFORMATION
  Report Type: Spontaneous
  Country: IT (occurrence: IT)
  Receive Date: 20130912
  Receipt Date: 20130913
  Transmission Date: 20140515
  Serious: Yes (Hospitalization)
  Sender: FDA-Public Use
  Company Number: IT-ROCHE-1272841

PATIENT
  Age: 70 Year
  Sex: 0

DRUGS (2)
  1. LUCENTIS [Suspect]
     Indication: DIABETIC RETINAL OEDEMA
     Route: 050
     Dates: start: 201306
  2. LUCENTIS [Suspect]
     Route: 050
     Dates: start: 20130719

REACTIONS (1)
  - Embolic stroke [Recovering/Resolving]
